FAERS Safety Report 10464061 (Version 2)
Quarter: 2015Q3

REPORT INFORMATION
  Report Type: Spontaneous
  Country: DK (occurrence: DK)
  Receive Date: 20140919
  Receipt Date: 20150904
  Transmission Date: 20151125
  Serious: Yes (Life-Threatening)
  Sender: FDA-Public Use
  Company Number: DK-BAYER-2014-135068

PATIENT
  Age: 26 Year
  Sex: Male

DRUGS (12)
  1. BURINEX [Concomitant]
     Active Substance: BUMETANIDE
     Dosage: UNK
  2. ELTROXIN [Concomitant]
     Active Substance: LEVOTHYROXINE
     Dosage: UNK
  3. KALEORID [Concomitant]
     Active Substance: POTASSIUM CHLORIDE
     Dosage: UNK
  4. SPIRIX [Concomitant]
     Active Substance: SPIRONOLACTONE
     Dosage: UNK
  5. ELTROXIN [Concomitant]
     Active Substance: LEVOTHYROXINE
     Dosage: 120 MG, UNK
  6. SPIRIX [Concomitant]
     Active Substance: SPIRONOLACTONE
     Dosage: 50 MG, UNK
  7. BURINEX [Concomitant]
     Active Substance: BUMETANIDE
     Dosage: 12 MG, UNK
  8. KALEORID [Concomitant]
     Active Substance: POTASSIUM CHLORIDE
     Dosage: 1500 MG, UNK
  9. MARCOUMAR [Concomitant]
     Active Substance: PHENPROCOUMON
     Dosage: UNK
  10. WARFARIN [Concomitant]
     Active Substance: WARFARIN
  11. ADEMPAS [Suspect]
     Active Substance: RIOCIGUAT
     Indication: PULMONARY ARTERIAL HYPERTENSION
     Dosage: 1.5 MG, TID
     Route: 048
     Dates: end: 20140824
  12. AIROMIR [Concomitant]
     Active Substance: ALBUTEROL SULFATE
     Dosage: UNK

REACTIONS (2)
  - Interstitial lung disease [Recovered/Resolved]
  - Haemoptysis [Recovering/Resolving]

NARRATIVE: CASE EVENT DATE: 20140824
